FAERS Safety Report 21680887 (Version 1)
Quarter: 2022Q4

REPORT INFORMATION
  Report Type: Spontaneous
  Country: US (occurrence: None)
  Receive Date: 20221202
  Receipt Date: 20221202
  Transmission Date: 20230112
  Serious: Yes (Hospitalization)
  Sender: FDA-Public Use
  Company Number: None

PATIENT
  Age: 17 Year
  Sex: Female
  Weight: 63.7 kg

DRUGS (6)
  1. CYCLOPHOSPHAMIDE [Suspect]
     Active Substance: CYCLOPHOSPHAMIDE
     Dates: end: 20221025
  2. CYTARABINE [Suspect]
     Active Substance: CYTARABINE
     Dates: end: 20221121
  3. MERCAPTOPURINE [Suspect]
     Active Substance: MERCAPTOPURINE
  4. METHOTREXATE [Suspect]
     Active Substance: METHOTREXATE
     Dates: end: 20221115
  5. PEGASPARGASE [Suspect]
     Active Substance: PEGASPARGASE
     Dates: end: 20221108
  6. VINCRISTINE SULFATE [Suspect]
     Active Substance: VINCRISTINE SULFATE

REACTIONS (5)
  - Pancreatitis [None]
  - Shock [None]
  - Blood lactic acid increased [None]
  - Tachycardia [None]
  - Therapy interrupted [None]

NARRATIVE: CASE EVENT DATE: 20221124
